FAERS Safety Report 9607666 (Version 3)
Quarter: 2013Q4

REPORT INFORMATION
  Report Type: Report from Study
  Country: CA (occurrence: CA)
  Receive Date: 20131009
  Receipt Date: 20131023
  Transmission Date: 20140711
  Serious: Yes (Life-Threatening, Other)
  Sender: FDA-Public Use
  Company Number: PHHY2013CA019546

PATIENT
  Sex: Male

DRUGS (5)
  1. SANDOSTATIN LAR [Suspect]
     Indication: NEUROENDOCRINE CARCINOMA METASTATIC
     Dosage: 30 MG, EVERY 4 WEEKS
     Route: 030
     Dates: start: 20121012
  2. SANDOSTATIN LAR [Suspect]
     Dosage: 20 MG, UNK
     Route: 030
  3. SANDOSTATIN LAR [Suspect]
     Dosage: 30 MG, EVERY 3 WEEKS
     Route: 030
  4. SANDOSTATIN LAR [Suspect]
     Dosage: 30 MG, EVERY 28 DAYS
     Route: 030
     Dates: end: 20130924
  5. ROSUVASTATIN [Concomitant]
     Dosage: 10 MG, DAILY
     Route: 048

REACTIONS (8)
  - Intestinal perforation [Recovering/Resolving]
  - Diverticulum [Recovering/Resolving]
  - Gastrointestinal inflammation [Recovering/Resolving]
  - Disease progression [Recovering/Resolving]
  - Cholelithiasis [Recovering/Resolving]
  - Lymphadenopathy [Recovering/Resolving]
  - Feeling abnormal [Unknown]
  - Incorrect dose administered [Unknown]
